FAERS Safety Report 5444572-7 (Version None)
Quarter: 2007Q3

REPORT INFORMATION
  Report Type: 
  Country: None (occurrence: None)
  Receive Date: 20070906
  Receipt Date: 20070830
  Transmission Date: 20080115
  Serious: Yes (Hospitalization)
  Sender: FDA-Public Use
  Company Number: DE-ASTRAZENECA-2007PK01792

PATIENT
  Age: 1079 Month
  Sex: Female
  Weight: 90 kg

DRUGS (8)
  1. SEROQUEL [Suspect]
     Indication: DEPRESSION
     Route: 048
     Dates: end: 20070514
  2. AZATHIOPRINE [Suspect]
     Indication: PEMPHIGOID
     Route: 048
  3. MIRTAZAPINE [Concomitant]
     Dosage: 45 MG PER DAY
     Route: 048
  4. CITALOPRAM HYDROBROMIDE [Concomitant]
     Route: 048
  5. PREDNISOLONE [Concomitant]
     Route: 048
     Dates: end: 20070527
  6. PANTOPRAZOLE SODIUM [Concomitant]
     Route: 048
  7. XUSAL [Concomitant]
     Route: 048
  8. HALDOL [Concomitant]
     Dosage: 45 GTT TO 50 GTT

REACTIONS (3)
  - AGRANULOCYTOSIS [None]
  - LEUKOPENIA [None]
  - PEMPHIGOID [None]
